FAERS Safety Report 16342492 (Version 1)
Quarter: 2019Q2

REPORT INFORMATION
  Report Type: Spontaneous
  Country: CH (occurrence: CH)
  Receive Date: 20190522
  Receipt Date: 20190522
  Transmission Date: 20190711
  Serious: Yes (Other)
  Sender: FDA-Public Use
  Company Number: CH-PFIZER INC-K200901156

PATIENT
  Age: 48 Year
  Sex: Female

DRUGS (1)
  1. SEPTRA [Suspect]
     Active Substance: SULFAMETHOXAZOLE\TRIMETHOPRIM
     Indication: NEPHROLITHIASIS
     Dosage: UNK

REACTIONS (3)
  - Drug eruption [Recovered/Resolved]
  - Hypersensitivity vasculitis [Recovered/Resolved]
  - Acute generalised exanthematous pustulosis [Recovered/Resolved]
